FAERS Safety Report 6744236-3 (Version None)
Quarter: 2010Q2

REPORT INFORMATION
  Report Type: 
  Country: None (occurrence: None)
  Receive Date: 20100525
  Receipt Date: 20100513
  Transmission Date: 20101027
  Serious: Yes (Other)
  Sender: FDA-Public Use
  Company Number: 2010-1261

PATIENT
  Age: 41 Year
  Sex: Female

DRUGS (3)
  1. DYSPORT [Suspect]
     Indication: MUSCLE SPASTICITY
     Dosage: 1000 UNITS (1000 UNITS,SINGLE CYCLE), INTRAMUSCULAR
     Route: 030
     Dates: start: 20090828, end: 20090828
  2. DYSPORT [Suspect]
     Indication: MUSCLE SPASTICITY
     Dosage: 1000 UNITS (1000 UNITS,SINGLE CYCLE), INTRAMUSCULAR
     Route: 030
     Dates: start: 20091204, end: 20091204
  3. DYSPORT [Suspect]
     Indication: MUSCLE SPASTICITY
     Dosage: 1000 UNITS (1000 UNITS,SINGLE CYCLE), INTRAMUSCULAR
     Route: 030
     Dates: start: 20100409, end: 20100409

REACTIONS (2)
  - DYSPNOEA [None]
  - WHEEZING [None]
